FAERS Safety Report 11057472 (Version 1)
Quarter: 2015Q2

REPORT INFORMATION
  Report Type: Report from Study
  Country: DE (occurrence: DE)
  Receive Date: 20150422
  Receipt Date: 20150422
  Transmission Date: 20150821
  Serious: Yes (Death)
  Sender: FDA-Public Use
  Company Number: DE-ACTELION-A-NJ2015-116829

PATIENT
  Age: 73 Year
  Sex: Female

DRUGS (11)
  1. MARCUMAR [Concomitant]
     Active Substance: PHENPROCOUMON
  2. ADCIRCA [Concomitant]
     Active Substance: TADALAFIL
     Indication: PULMONARY ARTERIAL HYPERTENSION
  3. SPIRIVA [Concomitant]
     Active Substance: TIOTROPIUM BROMIDE MONOHYDRATE
  4. SIMVASTATIN. [Concomitant]
     Active Substance: SIMVASTATIN
  5. ALDACTONE [Concomitant]
     Active Substance: SPIRONOLACTONE
  6. L-THYROX [Concomitant]
     Active Substance: LEVOTHYROXINE SODIUM
  7. TOREM [Concomitant]
     Active Substance: TORSEMIDE
  8. OPSUMIT [Concomitant]
     Active Substance: MACITENTAN
     Indication: PULMONARY ARTERIAL HYPERTENSION
     Route: 048
  9. VENTAVIS [Suspect]
     Active Substance: ILOPROST
     Indication: PULMONARY ARTERIAL HYPERTENSION
     Dosage: 2.5 MCG, 6ID
     Route: 055
     Dates: start: 20140930
  10. AMIODARON [Concomitant]
     Active Substance: AMIODARONE
  11. DOMPERIDON [Concomitant]
     Active Substance: DOMPERIDONE

REACTIONS (1)
  - Death [Fatal]

NARRATIVE: CASE EVENT DATE: 20150416
